FAERS Safety Report 5341701-0 (Version None)
Quarter: 2007Q2

REPORT INFORMATION
  Report Type: 
  Country: None (occurrence: None)
  Receive Date: 20070529
  Receipt Date: 20070529
  Transmission Date: 20071010
  Serious: Yes (Hospitalization, Other)
  Sender: FDA-Public Use
  Company Number: None

PATIENT
  Age: 52 Year
  Sex: Female

DRUGS (9)
  1. DILANTIN [Suspect]
     Indication: CONVULSION
  2. DILANTIN [Suspect]
     Indication: EBSTEIN'S ANOMALY
  3. FOSAMAX [Concomitant]
  4. CALCIUM CHLORIDE [Concomitant]
  5. VITAMIN D [Concomitant]
  6. LYRICA [Concomitant]
  7. TRIPEPTAL [Concomitant]
  8. PHENYTOIN [Concomitant]
  9. KEPPRA [Concomitant]

REACTIONS (1)
  - OSTEOPOROSIS [None]
